FAERS Safety Report 5657577-8 (Version None)
Quarter: 2008Q1

REPORT INFORMATION
  Report Type: 
  Country: None (occurrence: None)
  Receive Date: 20080310
  Receipt Date: 20080228
  Transmission Date: 20080703
  Serious: Yes (Other)
  Sender: FDA-Public Use
  Company Number: PHHY2008CO02347

PATIENT
  Age: 86 Year
  Sex: Male

DRUGS (4)
  1. STALEVO [Suspect]
     Indication: PARKINSON'S DISEASE
     Dosage: 150/37.5/200 MG EACH 8 HOURS
     Route: 048
     Dates: start: 20060101, end: 20080212
  2. FLUOXETINE [Concomitant]
     Dosage: 20 MG PER DAY
  3. BUPROPION HYDROCHLORIDE [Concomitant]
     Dosage: 150 MG PER DAY
  4. SINEMET [Concomitant]

REACTIONS (4)
  - PEMPHIGOID [None]
  - PRURIGO [None]
  - RASH ERYTHEMATOUS [None]
  - RASH VESICULAR [None]
